FAERS Safety Report 10768124 (Version 1)
Quarter: 2015Q1

REPORT INFORMATION
  Report Type: Spontaneous
  Country: US (occurrence: US)
  Receive Date: 20150205
  Receipt Date: 20150205
  Transmission Date: 20150721
  Serious: No
  Sender: FDA-Public Use
  Company Number: US-ASTRAZENECA-2015SE09644

PATIENT
  Sex: Female

DRUGS (2)
  1. PULMICORT FLEXHALER [Suspect]
     Active Substance: BUDESONIDE
     Route: 055
  2. ALBUTEROL SULFATE. [Concomitant]
     Active Substance: ALBUTEROL SULFATE
     Indication: ADVERSE EVENT

REACTIONS (12)
  - Ear disorder [Unknown]
  - Dysphonia [Unknown]
  - Intentional product misuse [Unknown]
  - Secretion discharge [Unknown]
  - Productive cough [Unknown]
  - Choking [Unknown]
  - Throat irritation [Unknown]
  - Speech disorder [Unknown]
  - Bronchitis [Recovered/Resolved]
  - Sinus disorder [Unknown]
  - Vomiting [Unknown]
  - Cough [Unknown]
